FAERS Safety Report 5492113-0 (Version None)
Quarter: 2007Q4

REPORT INFORMATION
  Report Type: 
  Country: None (occurrence: None)
  Receive Date: 20071015
  Receipt Date: 20070709
  Transmission Date: 20080405
  Serious: No
  Sender: FDA-Public Use
  Company Number: 2007SP002501

PATIENT
  Sex: 0

DRUGS (1)
  1. LUNESTA [Suspect]
     Dosage: ORAL
     Route: 048

REACTIONS (1)
  - DYSGEUSIA [None]
